FAERS Safety Report 24685338 (Version 2)
Quarter: 2025Q2

REPORT INFORMATION
  Report Type: Spontaneous
  Country: DE (occurrence: DE)
  Receive Date: 20241202
  Receipt Date: 20250418
  Transmission Date: 20250717
  Serious: Yes (Death, Other)
  Sender: ROCHE
  Company Number: DE-ROCHE-10000143625

PATIENT
  Age: 53 Year
  Sex: Female

DRUGS (1)
  1. AVASTIN [Suspect]
     Active Substance: BEVACIZUMAB
     Indication: Radiation necrosis
     Route: 042
     Dates: start: 202402, end: 202409

REACTIONS (6)
  - Off label use [Unknown]
  - Haemolytic anaemia [Fatal]
  - Metabolic encephalopathy [Fatal]
  - Thrombotic thrombocytopenic purpura [Unknown]
  - Multiple organ dysfunction syndrome [Unknown]
  - Pineal neoplasm [Unknown]

NARRATIVE: CASE EVENT DATE: 20240201
